FAERS Safety Report 5801892-1 (Version None)
Quarter: 2008Q3

REPORT INFORMATION
  Report Type: 
  Country: None (occurrence: None)
  Receive Date: 20080702
  Receipt Date: 20080620
  Transmission Date: 20090109
  Serious: Yes (Hospitalization)
  Sender: FDA-Public Use
  Company Number: TCI2008A02933

PATIENT
  Age: 56 Year
  Sex: Male

DRUGS (4)
  1. ACTOS [Suspect]
     Indication: HYPERLIPIDAEMIA
     Dosage: 15 MG (15 MG, 1 D) PER ORAL; 30 MG (30 MG, 1 D); PER ORAL
     Route: 048
     Dates: start: 20071027, end: 20071221
  2. ACTOS [Suspect]
     Indication: HYPERLIPIDAEMIA
     Dosage: 15 MG (15 MG, 1 D) PER ORAL; 30 MG (30 MG, 1 D); PER ORAL
     Route: 048
     Dates: start: 20071222, end: 20080606
  3. ZETIA [Suspect]
     Indication: HYPERLIPIDAEMIA
     Dosage: 10 MG (10 MG, 1 IN 1 D) PER ORAL
     Route: 048
     Dates: start: 20071222, end: 20080606
  4. BEZATOL SR (BEZAFIBRATE) [Concomitant]

REACTIONS (2)
  - APLASTIC ANAEMIA [None]
  - PANCYTOPENIA [None]
